FAERS Safety Report 11067476 (Version 1)
Quarter: 2015Q2

REPORT INFORMATION
  Report Type: Spontaneous
  Country: BE (occurrence: BE)
  Receive Date: 20150427
  Receipt Date: 20150427
  Transmission Date: 20150821
  Serious: Yes (Hospitalization)
  Sender: FDA-Public Use
  Company Number: BE-ROCHE-1568482

PATIENT
  Age: 54 Year
  Sex: Male
  Weight: 76 kg

DRUGS (3)
  1. MABTHERA [Suspect]
     Active Substance: RITUXIMAB
     Indication: THROMBOTIC THROMBOCYTOPENIC PURPURA
     Route: 042
     Dates: start: 200802
  2. VANCOMYCIN [Concomitant]
     Active Substance: VANCOMYCIN
     Indication: THROMBOTIC THROMBOCYTOPENIC PURPURA
     Route: 065
     Dates: start: 200608
  3. PLASMAPHERESIS [Concomitant]
     Indication: THROMBOTIC THROMBOCYTOPENIC PURPURA
     Route: 065
     Dates: start: 200608

REACTIONS (2)
  - Disease recurrence [Recovering/Resolving]
  - Product use issue [Unknown]

NARRATIVE: CASE EVENT DATE: 201503
